FAERS Safety Report 10435606 (Version 1)
Quarter: 2014Q3

REPORT INFORMATION
  Report Type: Spontaneous
  Country: US (occurrence: US)
  Receive Date: 20140908
  Receipt Date: 20140908
  Transmission Date: 20150326
  Serious: Yes (Hospitalization, Other)
  Sender: FDA-Public Use
  Company Number: US-ROCHE-1456683

PATIENT
  Age: 52 Year
  Sex: Female

DRUGS (29)
  1. PACLITAXEL. [Suspect]
     Active Substance: PACLITAXEL
     Indication: BREAST CANCER
     Route: 065
     Dates: start: 201001
  2. COUMADIN [Concomitant]
     Active Substance: WARFARIN SODIUM
  3. CARNITINE [Concomitant]
     Active Substance: CARNITINE
  4. TYKERB [Suspect]
     Active Substance: LAPATINIB DITOSYLATE
     Indication: BREAST CANCER
     Dosage: 5 TABLETS DAILY
     Route: 048
     Dates: start: 20100331, end: 20130502
  5. VANQUISH [Concomitant]
     Active Substance: ACETAMINOPHEN\ASPIRIN\CAFFEINE
  6. VITAMIN B-100 [Concomitant]
  7. GRAPE SEED EXTRACT [Concomitant]
     Active Substance: GRAPE SEED EXTRACT
  8. NORCO [Concomitant]
     Active Substance: ACETAMINOPHEN\HYDROCODONE BITARTRATE
  9. LYRICA [Concomitant]
     Active Substance: PREGABALIN
  10. MELATONIN [Concomitant]
     Active Substance: MELATONIN
  11. ALPHA LIPOIC ACID [Concomitant]
     Active Substance: .ALPHA.-LIPOIC ACID
  12. VITAMIN C [Concomitant]
     Active Substance: ASCORBIC ACID
  13. VITAMIN D3 [Concomitant]
     Active Substance: CHOLECALCIFEROL
  14. FISH OIL [Concomitant]
     Active Substance: FISH OIL
  15. UBIDECARENONE [Concomitant]
     Active Substance: UBIDECARENONE
  16. GINKGO [Concomitant]
     Active Substance: GINKGO
  17. TYKERB [Suspect]
     Active Substance: LAPATINIB DITOSYLATE
     Dosage: 5 TABLETS DAILY
     Route: 048
     Dates: start: 20130507, end: 201403
  18. TYKERB [Suspect]
     Active Substance: LAPATINIB DITOSYLATE
     Dosage: 4 TABLETS DAILY
     Route: 048
     Dates: start: 201403, end: 201404
  19. DOCOSAHEXAENOIC ACID [Concomitant]
  20. VITAMIN B12 [Concomitant]
     Active Substance: CYANOCOBALAMIN
  21. OMEGA FISH OIL [Concomitant]
     Active Substance: FISH OIL\OMEGA-3 FATTY ACIDS
  22. HERCEPTIN [Suspect]
     Active Substance: TRASTUZUMAB
     Indication: BREAST CANCER
     Route: 042
     Dates: start: 201001, end: 201004
  23. ZOMETA [Suspect]
     Active Substance: ZOLEDRONIC ACID
     Indication: PRODUCT USED FOR UNKNOWN INDICATION
     Route: 065
  24. VITAMIN B12 [Concomitant]
     Active Substance: CYANOCOBALAMIN
  25. SILYMARIN [Concomitant]
     Active Substance: MILK THISTLE
  26. ALOE VERA GEL [Concomitant]
     Active Substance: ALOE VERA LEAF
  27. COCONUT OIL [Concomitant]
     Active Substance: COCONUT OIL
  28. OLIVE OIL [Concomitant]
     Active Substance: OLIVE OIL
  29. MILK THISTLE [Concomitant]
     Active Substance: MILK THISTLE

REACTIONS (62)
  - Dyspnoea [Recovered/Resolved]
  - Erythema [Not Recovered/Not Resolved]
  - Liver function test abnormal [Not Recovered/Not Resolved]
  - Hypoaesthesia [Not Recovered/Not Resolved]
  - Cognitive disorder [Not Recovered/Not Resolved]
  - Arthralgia [Not Recovered/Not Resolved]
  - Nasal congestion [Not Recovered/Not Resolved]
  - Weight increased [Not Recovered/Not Resolved]
  - Muscle tightness [Not Recovered/Not Resolved]
  - Blood lactate dehydrogenase [Recovered/Resolved]
  - Thyroid function test abnormal [Not Recovered/Not Resolved]
  - Chest discomfort [Not Recovered/Not Resolved]
  - Diarrhoea [Not Recovered/Not Resolved]
  - Myalgia [Not Recovered/Not Resolved]
  - Paraesthesia [Not Recovered/Not Resolved]
  - Nasal ulcer [Not Recovered/Not Resolved]
  - Rash [Not Recovered/Not Resolved]
  - Mental impairment [Not Recovered/Not Resolved]
  - Musculoskeletal pain [Recovering/Resolving]
  - Renal function test abnormal [Not Recovered/Not Resolved]
  - Epistaxis [Not Recovered/Not Resolved]
  - Lymphoedema [Not Recovered/Not Resolved]
  - Visual impairment [Recovered/Resolved]
  - Extrasystoles [Unknown]
  - Neuropathy peripheral [Not Recovered/Not Resolved]
  - Middle insomnia [Not Recovered/Not Resolved]
  - Nausea [Not Recovered/Not Resolved]
  - Pain in extremity [Not Recovered/Not Resolved]
  - Feeling hot [Not Recovered/Not Resolved]
  - Balance disorder [Not Recovered/Not Resolved]
  - Heart rate irregular [Recovered/Resolved]
  - Faeces soft [Not Recovered/Not Resolved]
  - Ejection fraction decreased [Recovered/Resolved]
  - Anaemia [Not Recovered/Not Resolved]
  - Dyspepsia [Not Recovered/Not Resolved]
  - Insomnia [Not Recovered/Not Resolved]
  - Cough [Not Recovered/Not Resolved]
  - Memory impairment [Not Recovered/Not Resolved]
  - Sleep disorder [Not Recovered/Not Resolved]
  - Device failure [Unknown]
  - Ejection fraction decreased [Not Recovered/Not Resolved]
  - Back pain [Not Recovered/Not Resolved]
  - Onychalgia [Not Recovered/Not Resolved]
  - Vomiting [Recovering/Resolving]
  - Pain [Not Recovered/Not Resolved]
  - Anxiety [Not Recovered/Not Resolved]
  - Body temperature decreased [Not Recovered/Not Resolved]
  - Palmar erythema [Not Recovered/Not Resolved]
  - Gait disturbance [Not Recovered/Not Resolved]
  - Fatigue [Not Recovered/Not Resolved]
  - Flatulence [Not Recovered/Not Resolved]
  - Hallucination [Recovered/Resolved]
  - Abasia [Not Recovered/Not Resolved]
  - Chest pain [Recovered/Resolved]
  - Hyperventilation [Not Recovered/Not Resolved]
  - Dry skin [Not Recovered/Not Resolved]
  - Muscular weakness [Not Recovered/Not Resolved]
  - Tension [Not Recovered/Not Resolved]
  - Panic attack [Not Recovered/Not Resolved]
  - Amnesia [Recovered/Resolved]
  - Disturbance in attention [Not Recovered/Not Resolved]
  - Tooth disorder [Unknown]

NARRATIVE: CASE EVENT DATE: 20100421
